FAERS Safety Report 5121176-7 (Version None)
Quarter: 2006Q3

REPORT INFORMATION
  Report Type: 
  Country: None (occurrence: None)
  Receive Date: 20060929
  Receipt Date: 20060918
  Transmission Date: 20061208
  Serious: Yes (Other)
  Sender: FDA-Public Use
  Company Number: HQWYE862319SEP06

PATIENT
  Age: 43 Year
  Sex: Male

DRUGS (1)
  1. EFFEXOR XR [Suspect]
     Dosage: ORAL
     Route: 048
     Dates: start: 20060101

REACTIONS (4)
  - ANHEDONIA [None]
  - DISTURBANCE IN ATTENTION [None]
  - SELF-INJURIOUS IDEATION [None]
  - SOCIAL AVOIDANT BEHAVIOUR [None]
